FAERS Safety Report 23219339 (Version 1)
Quarter: 2023Q4

REPORT INFORMATION
  Report Type: Spontaneous
  Country: CA (occurrence: CA)
  Receive Date: 20231122
  Receipt Date: 20231122
  Transmission Date: 20240110
  Serious: Yes (Other)
  Sender: FDA-Public Use
  Company Number: CA-BAUSCH-BL-2023-017341

PATIENT
  Age: 77 Year
  Sex: Female
  Weight: 99.426 kg

DRUGS (5)
  1. DILTIAZEM [Suspect]
     Active Substance: DILTIAZEM
     Indication: Hypertension
     Dosage: CAPSULE,CONTROLLEDDELIVERY
     Route: 048
  2. DILTIAZEM [Suspect]
     Active Substance: DILTIAZEM
     Indication: Heart rate irregular
  3. MAVIK [Concomitant]
     Active Substance: TRANDOLAPRIL
     Indication: Product used for unknown indication
  4. METOPROLOL [Concomitant]
     Active Substance: METOPROLOL
     Indication: Product used for unknown indication
     Dosage: NOT SPECIFIED
     Route: 065
  5. PRADAXA [Concomitant]
     Active Substance: DABIGATRAN ETEXILATE MESYLATE
     Indication: Product used for unknown indication

REACTIONS (4)
  - Blood pressure inadequately controlled [Recovered/Resolved]
  - Dizziness [Recovered/Resolved]
  - Palpitations [Recovered/Resolved]
  - Product substitution issue [Recovered/Resolved]
